FAERS Safety Report 21734019 (Version 1)
Quarter: 2022Q4

REPORT INFORMATION
  Report Type: Spontaneous
  Country: US (occurrence: US)
  Receive Date: 20221215
  Receipt Date: 20221215
  Transmission Date: 20230113
  Serious: Yes (Hospitalization, Other)
  Sender: FDA-Public Use
  Company Number: US-BRISTOL-MYERS SQUIBB COMPANY-2022-153240

PATIENT
  Age: 71 Year
  Sex: Female
  Weight: 68.04 kg

DRUGS (3)
  1. ELIQUIS [Suspect]
     Active Substance: APIXABAN
     Indication: Splenic infarction
     Dosage: DOSE : 2.5 MG;     FREQ : TWICE DAILY
     Route: 048
     Dates: start: 202204
  2. NADOLOL [Concomitant]
     Active Substance: NADOLOL
     Indication: Blood pressure abnormal
  3. VITAMIN D [Concomitant]
     Active Substance: VITAMIN D NOS
     Indication: Product used for unknown indication

REACTIONS (5)
  - Metastases to abdominal cavity [Unknown]
  - Lymphadenopathy [Unknown]
  - Throat clearing [Unknown]
  - Varices oesophageal [Unknown]
  - Off label use [Unknown]

NARRATIVE: CASE EVENT DATE: 20220101
